FAERS Safety Report 19774823 (Version 1)
Quarter: 2021Q3

REPORT INFORMATION
  Report Type: Spontaneous
  Country: NL (occurrence: NL)
  Receive Date: 20210901
  Receipt Date: 20210901
  Transmission Date: 20211014
  Serious: Yes (Other)
  Sender: FDA-Public Use
  Company Number: NL-MYLANLABS-2021M1057198

PATIENT
  Age: 60 Year
  Sex: Female

DRUGS (7)
  1. PFIZER?BIONTECH COVID?19 VACCINE [Suspect]
     Active Substance: TOZINAMERAN
     Indication: COVID-19 IMMUNISATION
     Dosage: 1 DOSAGE FORM
     Dates: start: 20210610, end: 20210610
  2. PANTOPRAZOL                        /01263201/ [Concomitant]
     Active Substance: PANTOPRAZOLE
     Dosage: GASTRO?RESISTANT TABLET,20 MG (MILLIGRAM)
  3. METOPROLOL. [Concomitant]
     Active Substance: METOPROLOL
     Dosage: MODIFIED RELEASE TABLET, 50 MG (MILLIGRAM)
  4. SIMVASTATINE [Concomitant]
     Active Substance: SIMVASTATIN
     Dosage: FILM?COATED TABLET, 80 MG (MILLIGRAM)
  5. CIPROFLOXACIN. [Suspect]
     Active Substance: CIPROFLOXACIN
     Indication: PRODUCT USED FOR UNKNOWN INDICATION
     Dosage: UNK (2D500MG)
     Dates: start: 20210525
  6. CLOPIDOGREL [Concomitant]
     Active Substance: CLOPIDOGREL BISULFATE
     Dosage: TABLET, 75 MG (MILLIGRAM)
  7. IRBESARTAN. [Concomitant]
     Active Substance: IRBESARTAN
     Dosage: TABLET, 300 MG (MILLIGRAM)

REACTIONS (1)
  - Dermatitis bullous [Not Recovered/Not Resolved]

NARRATIVE: CASE EVENT DATE: 20210613
